FAERS Safety Report 8060989-9 (Version None)
Quarter: 2012Q1

REPORT INFORMATION
  Report Type: 
  Country: None (occurrence: None)
  Receive Date: 20120120
  Receipt Date: 20120117
  Transmission Date: 20120608
  Serious: Yes (Hospitalization)
  Sender: FDA-Public Use
  Company Number: NL-MERCK-1201NLD00016

PATIENT
  Age: 44 Year
  Sex: Male

DRUGS (8)
  1. DEXAMETHASONE [Concomitant]
     Indication: PROPHYLAXIS OF NAUSEA AND VOMITING
     Route: 048
  2. EMEND [Suspect]
     Route: 048
  3. ONDANSETRON [Concomitant]
     Indication: PROPHYLAXIS OF NAUSEA AND VOMITING
     Route: 065
  4. EMEND [Suspect]
     Indication: PROPHYLAXIS OF NAUSEA AND VOMITING
     Route: 048
  5. EMEND [Suspect]
     Route: 048
  6. CITALOPRAM [Concomitant]
     Indication: DEPRESSION
     Route: 048
  7. QUETIAPINE FUMARATE [Suspect]
     Indication: ANXIETY
     Route: 048
  8. CISPLATIN [Concomitant]
     Indication: CHEMOTHERAPY
     Route: 041

REACTIONS (5)
  - DRUG INTERACTION [None]
  - DEHYDRATION [None]
  - INHIBITORY DRUG INTERACTION [None]
  - SOMNOLENCE [None]
  - RENAL DISORDER [None]
